FAERS Safety Report 5867580-0 (Version None)
Quarter: 2008Q3

REPORT INFORMATION
  Report Type: 
  Country: None (occurrence: None)
  Receive Date: 20080902
  Receipt Date: 20080114
  Transmission Date: 20090109
  Serious: No
  Sender: FDA-Public Use
  Company Number: US-ABBOTT-07P-163-0423990-00

PATIENT
  Age: 14 Year
  Sex: Female
  Weight: 43.13 kg

DRUGS (2)
  1. DEPAKOTE ER [Suspect]
     Indication: BIPOLAR DISORDER
     Route: 048
     Dates: start: 20061201
  2. DEPAKOTE ER [Suspect]
     Dates: end: 20070901

REACTIONS (2)
  - BREAST TENDERNESS [None]
  - SKIN STRIAE [None]
